FAERS Safety Report 11062279 (Version 1)
Quarter: 2015Q2

REPORT INFORMATION
  Report Type: Spontaneous
  Country: US (occurrence: US)
  Receive Date: 20150424
  Receipt Date: 20150424
  Transmission Date: 20150821
  Serious: Yes (Hospitalization)
  Sender: FDA-Public Use
  Company Number: US-CELGENEUS-USA-2015042397

PATIENT
  Sex: Female
  Weight: 69.46 kg

DRUGS (1)
  1. POMALYST [Suspect]
     Active Substance: POMALIDOMIDE
     Indication: 5Q MINUS SYNDROME
     Dosage: 4 MILLIGRAM
     Route: 048
     Dates: start: 20140317

REACTIONS (1)
  - Bronchitis [Recovering/Resolving]
